FAERS Safety Report 8967084 (Version 1)
Quarter: 2012Q4

REPORT INFORMATION
  Report Type: 
  Country: IT (occurrence: IT)
  Receive Date: 20121214
  Receipt Date: 20121214
  Transmission Date: 20130627
  Serious: Yes (Other)
  Sender: FDA-Public Use
  Company Number: IT-MYLANLABS-2012S1025059

PATIENT
  Sex: Male

DRUGS (4)
  1. MORPHINE [Suspect]
     Indication: DRUG WITHDRAWAL SYNDROME NEONATAL
     Dosage: 0.5 mg/kg/24h in 4 divided doses every 6h on d1; then increased to 0.7 mg/kg/24h on d2
     Route: 048
  2. MORPHINE [Suspect]
     Indication: DRUG WITHDRAWAL SYNDROME NEONATAL
     Dosage: 0.7 mg/kg/24h on d2; then decreased to 0.4 mg/kg/24h in 3 divided doses every 8h by day 4
     Route: 048
  3. MORPHINE [Suspect]
     Indication: DRUG WITHDRAWAL SYNDROME NEONATAL
     Dosage: 0.4 mg/kg/24h in 3 divided doses every 8h
     Route: 048
  4. ZIDOVUDINE [Concomitant]
     Indication: PROPHYLAXIS AGAINST HIV INFECTION
     Route: 048

REACTIONS (2)
  - Renal failure acute [Recovered/Resolved]
  - Hydronephrosis [Recovered/Resolved]
